FAERS Safety Report 6377125-7 (Version None)
Quarter: 2009Q3

REPORT INFORMATION
  Report Type: 
  Country: None (occurrence: None)
  Receive Date: 20090923
  Receipt Date: 20090923
  Transmission Date: 20100115
  Serious: No
  Sender: FDA-Public Use
  Company Number: None

PATIENT
  Age: 55 Year
  Sex: Female
  Weight: 111.1313 kg

DRUGS (1)
  1. TRAVATAN [Suspect]
     Indication: GLAUCOMA
     Dosage: 1 DROP IN EACH EYE NIGHTLY OPHTHALMIC
     Route: 047
     Dates: start: 20090918, end: 20090919

REACTIONS (1)
  - VISION BLURRED [None]
